FAERS Safety Report 24760269 (Version 1)
Quarter: 2024Q4

REPORT INFORMATION
  Report Type: Spontaneous
  Country: FR (occurrence: FR)
  Receive Date: 20241220
  Receipt Date: 20241220
  Transmission Date: 20250114
  Serious: Yes (Hospitalization)
  Sender: PFIZER
  Company Number: None

PATIENT
  Age: 69 Year
  Sex: Male
  Weight: 63 kg

DRUGS (7)
  1. RIFABUTIN [Suspect]
     Active Substance: RIFABUTIN
     Indication: Endocarditis
     Dosage: UNK
     Route: 048
     Dates: start: 20190207, end: 20190525
  2. CLARITHROMYCIN [Suspect]
     Active Substance: CLARITHROMYCIN
     Indication: Endocarditis
     Dosage: UNK
     Route: 048
     Dates: start: 20190207, end: 20190525
  3. ETHAMBUTOL HYDROCHLORIDE [Suspect]
     Active Substance: ETHAMBUTOL HYDROCHLORIDE
     Indication: Endocarditis
     Route: 048
     Dates: start: 20190207, end: 20190225
  4. FUROSEMIDE [Concomitant]
     Active Substance: FUROSEMIDE
  5. RAMIPRIL [Concomitant]
     Active Substance: RAMIPRIL
  6. BISOPROLOL [Concomitant]
     Active Substance: BISOPROLOL
  7. KARDEGIC [Concomitant]
     Active Substance: ASPIRIN DL-LYSINE

REACTIONS (3)
  - Pruritus [Recovered/Resolved]
  - Cholestasis [Recovering/Resolving]
  - Rash macular [Recovered/Resolved]

NARRATIVE: CASE EVENT DATE: 20190201
